FAERS Safety Report 10231259 (Version 1)
Quarter: 2014Q2

REPORT INFORMATION
  Report Type: Spontaneous
  Country: US (occurrence: US)
  Receive Date: 20140611
  Receipt Date: 20140611
  Transmission Date: 20141212
  Serious: Yes (Hospitalization)
  Sender: FDA-Public Use
  Company Number: US-GLAXOSMITHKLINE-A1075691A

PATIENT
  Age: 56 Year
  Sex: Male

DRUGS (15)
  1. COREG [Suspect]
     Indication: HYPERTENSION
     Route: 048
     Dates: start: 2009
  2. CHEMOTHERAPY [Suspect]
     Indication: THROAT CANCER
     Route: 065
  3. RADIATION [Suspect]
     Indication: THROAT CANCER
     Route: 065
  4. NOVOLOG [Concomitant]
  5. IMDUR [Concomitant]
  6. PLAVIX [Concomitant]
  7. ASPIRIN [Concomitant]
  8. TRICOR [Concomitant]
  9. NEXIUM [Concomitant]
  10. KEPPRA [Concomitant]
  11. NAMENDA [Concomitant]
  12. PRAVASTATIN [Concomitant]
  13. ZOLOFT [Concomitant]
  14. LASIX [Concomitant]
  15. FLOMAX [Concomitant]

REACTIONS (12)
  - Leg amputation [Recovered/Resolved]
  - Throat cancer [Unknown]
  - Myocardial infarction [Unknown]
  - Loss of consciousness [Unknown]
  - Aphagia [Unknown]
  - Gangrene [Unknown]
  - Stent placement [Unknown]
  - Dizziness [Unknown]
  - Hypotension [Recovering/Resolving]
  - Poor peripheral circulation [Unknown]
  - Weight decreased [Recovering/Resolving]
  - Vomiting [Unknown]
